FAERS Safety Report 18464269 (Version 1)
Quarter: 2020Q4

REPORT INFORMATION
  Report Type: Spontaneous
  Country: CA (occurrence: CA)
  Receive Date: 20201104
  Receipt Date: 20201104
  Transmission Date: 20210114
  Serious: No
  Sender: FDA-Public Use
  Company Number: CA-JAZZ-2020-CA-013928

PATIENT
  Age: 20 Year
  Sex: Female

DRUGS (9)
  1. DOXORUBICIN [Concomitant]
     Active Substance: DOXORUBICIN
  2. IDARUBICIN [Concomitant]
     Active Substance: IDARUBICIN
  3. DARATUMUMAB [Concomitant]
     Active Substance: DARATUMUMAB
  4. CYTARABINE. [Concomitant]
     Active Substance: CYTARABINE
  5. NELARABINE [Concomitant]
     Active Substance: NELARABINE
  6. DEFITELIO [Suspect]
     Active Substance: DEFIBROTIDE SODIUM
     Indication: PROPHYLAXIS
     Dosage: UNKNOWN DOSAGE
     Dates: start: 2020, end: 2020
  7. CYCLOPHOSPHAMIDE. [Concomitant]
     Active Substance: CYCLOPHOSPHAMIDE
  8. VINCRISTINE SULFATE. [Concomitant]
     Active Substance: VINCRISTINE SULFATE
  9. FLUDARABINE [Concomitant]
     Active Substance: FLUDARABINE PHOSPHATE

REACTIONS (1)
  - Off label use [Unknown]

NARRATIVE: CASE EVENT DATE: 2020
